FAERS Safety Report 5549775-9 (Version None)
Quarter: 2007Q4

REPORT INFORMATION
  Report Type: 
  Country: None (occurrence: None)
  Receive Date: 20071212
  Receipt Date: 20070510
  Transmission Date: 20080405
  Serious: No
  Sender: FDA-Public Use
  Company Number: US-AMGEN-KDL222539

PATIENT
  Sex: Female

DRUGS (10)
  1. ENBREL [Suspect]
     Indication: RHEUMATOID ARTHRITIS
     Route: 058
     Dates: start: 20061001
  2. METHOTREXATE [Concomitant]
     Dates: start: 20060101
  3. BONIVA [Concomitant]
  4. CALCIUM [Concomitant]
  5. VITAMIN D [Concomitant]
  6. CRESTOR [Concomitant]
  7. DIOVAN [Concomitant]
  8. LEXAPRO [Concomitant]
  9. PROCARDIA XL [Concomitant]
  10. PREDNISONE [Concomitant]
     Dates: start: 20060901

REACTIONS (1)
  - RHEUMATOID ARTHRITIS [None]
